FAERS Safety Report 25543363 (Version 1)
Quarter: 2025Q3

REPORT INFORMATION
  Report Type: Spontaneous
  Country: GB (occurrence: GB)
  Receive Date: 20250711
  Receipt Date: 20250711
  Transmission Date: 20251021
  Serious: Yes (Other)
  Sender: MYLAN
  Company Number: None

PATIENT
  Age: 23 Year
  Sex: Female
  Weight: 80 kg

DRUGS (4)
  1. CITALOPRAM [Suspect]
     Active Substance: CITALOPRAM
     Indication: Anxiety
  2. CITALOPRAM [Suspect]
     Active Substance: CITALOPRAM
     Route: 065
  3. CITALOPRAM [Suspect]
     Active Substance: CITALOPRAM
     Route: 065
  4. CITALOPRAM [Suspect]
     Active Substance: CITALOPRAM

REACTIONS (4)
  - Memory impairment [Not Recovered/Not Resolved]
  - Yawning [Not Recovered/Not Resolved]
  - Hyperhidrosis [Recovering/Resolving]
  - Disturbance in attention [Not Recovered/Not Resolved]

NARRATIVE: CASE EVENT DATE: 20250608
